FAERS Safety Report 9241270 (Version 1)
Quarter: 2013Q1

REPORT INFORMATION
  Report Type: Spontaneous
  Country: US (occurrence: None)
  Receive Date: 20121120
  Receipt Date: 20121120
  Transmission Date: 20140127
  Serious: No
  Sender: FDA-Public Use
  Company Number: 1000038194

PATIENT
  Age: 54 Year
  Sex: Female

DRUGS (6)
  1. VIIBRYD [Suspect]
     Indication: ANXIETY
     Route: 048
     Dates: start: 20120824, end: 20120826
  2. PRILOSEC (OMEPRAZOLE) (OMEPRAZOLE) [Concomitant]
  3. LOSARTAN (LOSARTAN) (LOSARTAN) [Concomitant]
  4. MVI (VITAMINS NOS) (VITAMINS NOS) [Concomitant]
  5. VITAMIN D (CHOLECALCIFEROL) (CHOLECALCIFEROL) [Concomitant]
  6. BIOTIN  (BIOTIN) (BIOTIN) [Concomitant]

REACTIONS (3)
  - Anxiety [None]
  - Paranoia [None]
  - Off label use [None]
